FAERS Safety Report 10150684 (Version 1)
Quarter: 2014Q2

REPORT INFORMATION
  Report Type: Spontaneous
  Country: US (occurrence: US)
  Receive Date: 20140502
  Receipt Date: 20140502
  Transmission Date: 20141212
  Serious: Yes (Other)
  Sender: FDA-Public Use
  Company Number: CHPA2014US005918

PATIENT
  Age: 52 Year
  Sex: Female

DRUGS (7)
  1. PREVACID 24HR 15MG [Suspect]
     Indication: HIATUS HERNIA
     Dosage: 2 DF QD
     Route: 048
  2. PREVACID 24HR 15MG [Suspect]
     Indication: GASTROOESOPHAGEAL REFLUX DISEASE
  3. PREVACID 24HR 15MG [Suspect]
     Indication: INCORRECT DOSE ADMINISTERED
  4. PREVACID 24HR 15MG [Suspect]
     Indication: OFF LABEL USE
  5. PLAVIX [Suspect]
     Dosage: UNK, UNK
  6. SIMVASTATIN [Concomitant]
  7. ASPIRIN [Concomitant]

REACTIONS (2)
  - Arterial occlusive disease [Unknown]
  - Abdominal discomfort [Unknown]
